FAERS Safety Report 23792074 (Version 2)
Quarter: 2025Q3

REPORT INFORMATION
  Report Type: Spontaneous
  Country: EU (occurrence: EU)
  Receive Date: 20240429
  Receipt Date: 20250911
  Transmission Date: 20251020
  Serious: Yes (Death, Other)
  Sender: Haleon PLC
  Company Number: None

PATIENT
  Age: 42 Year
  Sex: Female

DRUGS (8)
  1. ACETAMINOPHEN [Suspect]
     Active Substance: ACETAMINOPHEN
     Indication: Suicide attempt
  2. NORTRIPTYLINE HYDROCHLORIDE [Suspect]
     Active Substance: NORTRIPTYLINE HYDROCHLORIDE
     Indication: Suicide attempt
  3. TRAMADOL HYDROCHLORIDE [Suspect]
     Active Substance: TRAMADOL HYDROCHLORIDE
     Indication: Intentional overdose
  4. TRAMADOL HYDROCHLORIDE [Suspect]
     Active Substance: TRAMADOL HYDROCHLORIDE
     Indication: Suicide attempt
  5. ALCOHOL [Suspect]
     Active Substance: ALCOHOL
     Indication: Product used for unknown indication
  6. LYRICA [Suspect]
     Active Substance: PREGABALIN
     Indication: Intentional overdose
  7. LYRICA [Suspect]
     Active Substance: PREGABALIN
     Indication: Suicide attempt
  8. AMITRIPTYLINE HYDROCHLORIDE [Suspect]
     Active Substance: AMITRIPTYLINE HYDROCHLORIDE
     Indication: Suicide attempt

REACTIONS (2)
  - Completed suicide [Fatal]
  - Overdose [Fatal]
